FAERS Safety Report 24460493 (Version 1)
Quarter: 2024Q4

REPORT INFORMATION
  Report Type: Report from Study
  Country: US (occurrence: US)
  Receive Date: 20241018
  Receipt Date: 20241018
  Transmission Date: 20250115
  Serious: No
  Sender: ROCHE
  Company Number: US-ROCHE-3559107

PATIENT
  Age: 34 Year
  Sex: Male

DRUGS (6)
  1. RITUXAN [Suspect]
     Active Substance: RITUXIMAB
     Indication: Nephrotic syndrome
     Dosage: DATE OF TREATMENT: //2020
     Route: 065
  2. RITUXAN [Suspect]
     Active Substance: RITUXIMAB
     Indication: Glomerulonephritis
  3. RITUXAN [Suspect]
     Active Substance: RITUXIMAB
     Indication: Arthropathy
  4. RITUXAN [Suspect]
     Active Substance: RITUXIMAB
     Indication: Chronic kidney disease
  5. CYCLOSPORINE [Concomitant]
     Active Substance: CYCLOSPORINE
  6. PREDNISONE [Concomitant]
     Active Substance: PREDNISONE

REACTIONS (2)
  - Off label use [Unknown]
  - No adverse event [Unknown]
